FAERS Safety Report 4443235-4 (Version None)
Quarter: 2004Q3

REPORT INFORMATION
  Report Type: 
  Country: None (occurrence: None)
  Receive Date: 20040907
  Receipt Date: 20040907
  Transmission Date: 20050211
  Serious: Yes (Other)
  Sender: FDA-Public Use
  Company Number: None

PATIENT
  Sex: Female
  Weight: 63.5036 kg

DRUGS (2)
  1. ZOLOFT [Suspect]
     Indication: ANXIETY
     Dosage: 100/75  /50/25 1X DAY ORAL
     Route: 048
     Dates: start: 20020101, end: 20040825
  2. ZOLOFT [Suspect]
     Indication: DEPRESSION
     Dosage: 100/75  /50/25 1X DAY ORAL
     Route: 048
     Dates: start: 20020101, end: 20040825

REACTIONS (8)
  - ASTHENIA [None]
  - DIARRHOEA [None]
  - DISTURBANCE IN ATTENTION [None]
  - DIZZINESS [None]
  - FATIGUE [None]
  - FEELING ABNORMAL [None]
  - FORMICATION [None]
  - NAUSEA [None]
